FAERS Safety Report 9998977 (Version 2)
Quarter: 2020Q3

REPORT INFORMATION
  Report Type: Report from Study
  Country: GB (occurrence: GB)
  Receive Date: 20140312
  Receipt Date: 20140312
  Transmission Date: 20201104
  Serious: Yes (Hospitalization, Other)
  Sender: FDA-Public Use
  Company Number: GB-ROCHE-1357229

PATIENT
  Age: 53 Year
  Sex: Female

DRUGS (4)
  1. ADCAL (UNITED KINGDOM) [Concomitant]
     Route: 048
     Dates: start: 20090519
  2. IBANDRONIC ACID. [Suspect]
     Active Substance: IBANDRONIC ACID
     Indication: CANCER PAIN
     Route: 065
     Dates: start: 20090518, end: 20101123
  3. ZOLADEX [Concomitant]
     Active Substance: GOSERELIN ACETATE
     Route: 058
     Dates: start: 20090810
  4. ANASTROZOL [Concomitant]
     Active Substance: ANASTROZOLE
     Route: 065
     Dates: start: 20090810

REACTIONS (1)
  - Renal failure [Recovered/Resolved with Sequelae]

NARRATIVE: CASE EVENT DATE: 20101122
